FAERS Safety Report 18501958 (Version 2)
Quarter: 2020Q4

REPORT INFORMATION
  Report Type: Report from Study
  Country: US (occurrence: US)
  Receive Date: 20201113
  Receipt Date: 20201211
  Transmission Date: 20210114
  Serious: Yes (Other)
  Sender: FDA-Public Use
  Company Number: US-ROCHE-2710939

PATIENT
  Age: 54 Year
  Sex: Male
  Weight: 130 kg

DRUGS (5)
  1. OBINUTUZUMAB. [Suspect]
     Active Substance: OBINUTUZUMAB
     Indication: CHRONIC LYMPHOCYTIC LEUKAEMIA
     Dosage: DAY 1, CYCLE 1?LAST DOSE PRIOR TO  AE (100 MG): 07/JUL/2020
     Route: 042
     Dates: start: 20200707
  2. OBINUTUZUMAB. [Suspect]
     Active Substance: OBINUTUZUMAB
     Dosage: DAY 2, CYCLE 1
     Route: 042
  3. VENETOCLAX. [Suspect]
     Active Substance: VENETOCLAX
     Indication: CHRONIC LYMPHOCYTIC LEUKAEMIA
     Dosage: ON DAYS 1-7 CYCLE 3, 50 MG PO EVERY DAY ON DAYS 8-14, CYCLE 3 100 MG PO EVERY DAY
     Route: 048
     Dates: start: 20200707
  4. OBINUTUZUMAB. [Suspect]
     Active Substance: OBINUTUZUMAB
     Dosage: 1000 MG IV ON DAY 8, CYCLE 1 1000 MG IV ON DAY 15, CYCLE 1 1000 MG IV ON DAY 1, CYCLE 2-6
     Route: 042
  5. IBRUTINIB [Suspect]
     Active Substance: IBRUTINIB
     Indication: CHRONIC LYMPHOCYTIC LEUKAEMIA
     Dosage: DAYS 1-28, CYCLES 1-19?TOTAL DOSE ADMINISTERED THIS COURSE: 420MG: LAST ADMINISTERED DATE: 07-JUL-20
     Route: 048
     Dates: start: 20200707

REACTIONS (1)
  - Lymphocyte count increased [Recovered/Resolved]

NARRATIVE: CASE EVENT DATE: 20200707
